FAERS Safety Report 18312056 (Version 2)
Quarter: 2020Q4

REPORT INFORMATION
  Report Type: Spontaneous
  Country: US (occurrence: US)
  Receive Date: 20200925
  Receipt Date: 20201009
  Transmission Date: 20210113
  Serious: No
  Sender: FDA-Public Use
  Company Number: US-SUNOVION-2020SUN002633

PATIENT
  Age: 55 Year
  Sex: Female

DRUGS (1)
  1. LONHALA MAGNAIR [Suspect]
     Active Substance: GLYCOPYRROLATE
     Dosage: 25 ?G/1ML, BID
     Route: 055

REACTIONS (6)
  - Psoriasis [Unknown]
  - Incorrect dose administered [Unknown]
  - Device power source issue [Unknown]
  - Device issue [Unknown]
  - Device delivery system issue [Unknown]
  - Malaise [Unknown]
